FAERS Safety Report 5729213-3 (Version None)
Quarter: 2008Q2

REPORT INFORMATION
  Report Type: 
  Country: None (occurrence: None)
  Receive Date: 20080506
  Receipt Date: 20080428
  Transmission Date: 20081010
  Serious: Yes (Other)
  Sender: FDA-Public Use
  Company Number: JP-PFIZER INC-2008001713

PATIENT
  Sex: Male
  Weight: 64 kg

DRUGS (2)
  1. CARDENALIN [Suspect]
     Indication: HYPERTENSION
     Route: 048
     Dates: start: 20071108, end: 20080130
  2. AMLODIN [Suspect]
     Indication: HYPERTENSION
     Route: 048
     Dates: start: 20070802, end: 20080131

REACTIONS (1)
  - EJACULATION FAILURE [None]
